FAERS Safety Report 8619801-9 (Version None)
Quarter: 2012Q3

REPORT INFORMATION
  Report Type: 
  Country: None (occurrence: None)
  Receive Date: 20120824
  Receipt Date: 20120816
  Transmission Date: 20120928
  Serious: Yes (Other)
  Sender: FDA-Public Use
  Company Number: US-PERRIGO-12US005494

PATIENT
  Sex: Male
  Weight: 39.909 kg

DRUGS (4)
  1. DIBROMM DM PE GRP LIQ 987 [Suspect]
     Indication: PULMONARY CONGESTION
  2. CHILDRENS TRIAMINIC ACETAMINOPHEN [Concomitant]
     Indication: PYREXIA
     Dosage: UNK
     Route: 065
     Dates: start: 20120620, end: 20120622
  3. DIBROMM DM PE GRP LIQ 987 [Suspect]
     Indication: COUGH
     Dosage: 17.5 ML, SINGLE
     Route: 048
     Dates: start: 20120620, end: 20120620
  4. IBUPROFEN [Concomitant]
     Indication: PYREXIA
     Dosage: UNK
     Route: 065
     Dates: start: 20120620, end: 20120622

REACTIONS (6)
  - PRESYNCOPE [None]
  - NIGHTMARE [None]
  - APHASIA [None]
  - INCOHERENT [None]
  - DELIRIUM [None]
  - DISTURBANCE IN ATTENTION [None]
